FAERS Safety Report 8883933 (Version 1)
Quarter: 2012Q4

REPORT INFORMATION
  Report Type: 
  Country: US (occurrence: US)
  Receive Date: 20121102
  Receipt Date: 20121102
  Transmission Date: 20130627
  Serious: Yes (Other)
  Sender: FDA-Public Use
  Company Number: US-PFIZER INC-2012273342

PATIENT
  Sex: Female

DRUGS (4)
  1. EFFEXOR XR [Suspect]
     Indication: DEPRESSION
     Dosage: 225 mg, 1x/day
  2. EFFEXOR XR [Suspect]
     Dosage: 75 mg, 1x/day
  3. ZOLOFT [Suspect]
     Indication: DEPRESSION
     Dosage: UNK
  4. METFORMIN [Concomitant]
     Indication: DIABETES
     Dosage: UNK

REACTIONS (11)
  - Cerebrovascular accident [Unknown]
  - Vertigo [Unknown]
  - Balance disorder [Unknown]
  - Malaise [Unknown]
  - Nausea [Unknown]
  - Motion sickness [Unknown]
  - Vomiting [Unknown]
  - Insomnia [Unknown]
  - Emotional disorder [Unknown]
  - Agitation [Unknown]
  - Drug ineffective [Unknown]
